FAERS Safety Report 24436490 (Version 1)
Quarter: 2024Q4

REPORT INFORMATION
  Report Type: Spontaneous
  Country: CN (occurrence: CN)
  Receive Date: 20241015
  Receipt Date: 20241015
  Transmission Date: 20250115
  Serious: Yes (Death, Hospitalization, Other)
  Sender: AZURITY PHARMACEUTICALS
  Company Number: CN-AZURITY PHARMACEUTICALS, INC.-AZR202409-000830

PATIENT
  Age: 74 Year
  Sex: Female

DRUGS (6)
  1. METHYLPREDNISOLONE ACETATE [Suspect]
     Active Substance: METHYLPREDNISOLONE ACETATE
     Indication: Pemphigoid
     Dosage: 40 MILLIGRAM, QD
     Route: 048
  2. METHYLPREDNISOLONE ACETATE [Suspect]
     Active Substance: METHYLPREDNISOLONE ACETATE
     Dosage: 20 MG IN THE MORNING AND 16 MG IN THE EVENING
     Route: 048
  3. METHYLPREDNISOLONE ACETATE [Suspect]
     Active Substance: METHYLPREDNISOLONE ACETATE
     Dosage: 16 MG IN THE MORNING AND 12 MG IN THE EVENING
     Route: 048
  4. METHYLPREDNISOLONE ACETATE [Suspect]
     Active Substance: METHYLPREDNISOLONE ACETATE
     Dosage: 4 MILLIGRAM, UNKNOWN
     Route: 048
  5. DUPILUMAB [Suspect]
     Active Substance: DUPILUMAB
     Indication: Pemphigoid
     Dosage: 300 MILLIGRAM, BID
     Route: 058
  6. DUPILUMAB [Suspect]
     Active Substance: DUPILUMAB
     Dosage: 300 MILLIGRAM, EVERY TWO WEEKS
     Route: 058

REACTIONS (6)
  - Respiratory failure [Unknown]
  - Central nervous system infection [Unknown]
  - Herpes virus infection [Unknown]
  - Enterococcal infection [Unknown]
  - Pneumonia [Fatal]
  - Sepsis [Unknown]
